FAERS Safety Report 17604643 (Version 1)
Quarter: 2020Q1

REPORT INFORMATION
  Report Type: Spontaneous
  Country: US (occurrence: US)
  Receive Date: 20200331
  Receipt Date: 20200331
  Transmission Date: 20200409
  Serious: Yes (Other)
  Sender: FDA-Public Use
  Company Number: None

PATIENT
  Age: 49 Year
  Sex: Female
  Weight: 40.4 kg

DRUGS (5)
  1. ALVIMOPAN 12MG CAPSULE [Concomitant]
     Dates: start: 20190210, end: 20190210
  2. LACTATED RINGERS SOLUTION [Concomitant]
     Active Substance: CALCIUM CHLORIDE\POTASSIUM CHLORIDE\SODIUM CHLORIDE\SODIUM LACTATE
     Dates: start: 20190210, end: 20190210
  3. SCOPOLAMINE 1MG PATCH [Concomitant]
     Dates: start: 20190210, end: 20190211
  4. ACETAMINOPHEN 1000MG GEL CAP [Concomitant]
     Dates: start: 20190210, end: 20190210
  5. INDIGO CARMINE [Suspect]
     Active Substance: INDIGOTINDISULFONATE SODIUM
     Indication: DIAGNOSTIC PROCEDURE
     Dosage: ?          OTHER FREQUENCY:ONCE;?
     Route: 042
     Dates: start: 20200210, end: 20200210

REACTIONS (1)
  - Chromaturia [None]

NARRATIVE: CASE EVENT DATE: 20200210
